FAERS Safety Report 8376394-1 (Version None)
Quarter: 2012Q2

REPORT INFORMATION
  Report Type: 
  Country: None (occurrence: None)
  Receive Date: 20120522
  Receipt Date: 20120511
  Transmission Date: 20120825
  Serious: No
  Sender: FDA-Public Use
  Company Number: US-ASTRAZENECA-2012SE30781

PATIENT
  Age: 59 Year
  Sex: Female

DRUGS (2)
  1. KLONOPIN [Concomitant]
  2. NEXIUM [Suspect]
     Route: 048

REACTIONS (4)
  - GASTROOESOPHAGEAL REFLUX DISEASE [None]
  - INSOMNIA [None]
  - MEMORY IMPAIRMENT [None]
  - ANXIETY [None]
